FAERS Safety Report 11276526 (Version 1)
Quarter: 2015Q3

REPORT INFORMATION
  Report Type: Spontaneous
  Country: JP (occurrence: JP)
  Receive Date: 20150716
  Receipt Date: 20150716
  Transmission Date: 20151125
  Serious: Yes (Congenital Anomaly, Other)
  Sender: FDA-Public Use
  Company Number: JP-ELI_LILLY_AND_COMPANY-JP201507004448

PATIENT
  Age: 0 Day

DRUGS (5)
  1. INSULIN DETEMIR [Concomitant]
     Active Substance: INSULIN DETEMIR
     Dosage: 25-28 IU
     Route: 058
     Dates: start: 20150519, end: 20150612
  2. INSULIN DETEMIR [Concomitant]
     Active Substance: INSULIN DETEMIR
     Indication: TYPE 1 DIABETES MELLITUS
     Dosage: 25-28 IU
     Route: 064
     Dates: start: 20130612, end: 20140515
  3. HUMALOG [Suspect]
     Active Substance: INSULIN LISPRO
     Indication: TYPE 1 DIABETES MELLITUS
     Dosage: 24-39 IU
     Route: 064
  4. HUMALOG [Suspect]
     Active Substance: INSULIN LISPRO
     Dosage: 24-39 IU
     Route: 063
  5. INSULIN GLARGINE [Concomitant]
     Active Substance: INSULIN GLARGINE
     Indication: TYPE 1 DIABETES MELLITUS
     Dosage: 28 IU, QD
     Route: 064
     Dates: start: 20110725, end: 20130611

REACTIONS (4)
  - Exposure during breast feeding [Unknown]
  - Polydactyly [Recovered/Resolved]
  - Foetal exposure during pregnancy [Unknown]
  - Apgar score low [Unknown]

NARRATIVE: CASE EVENT DATE: 20131226
